FAERS Safety Report 7913545-4 (Version None)
Quarter: 2011Q4

REPORT INFORMATION
  Report Type: 
  Country: None (occurrence: None)
  Receive Date: 20111110
  Receipt Date: 20111104
  Transmission Date: 20120403
  Serious: Yes (Hospitalization, Other)
  Sender: FDA-Public Use
  Company Number: 2011SP019419

PATIENT
  Age: 18 Year
  Sex: Female
  Weight: 68.0396 kg

DRUGS (5)
  1. CITALOPRAM HYDROBROMIDE [Concomitant]
  2. PHENTERMINE [Suspect]
     Indication: PRODUCT USED FOR UNKNOWN INDICATION
  3. WELLBUTRIN [Suspect]
     Indication: DEPRESSION
  4. TRAZODONE HCL [Concomitant]
  5. NUVARING [Suspect]
     Indication: CONTRACEPTION
     Dates: end: 20090519

REACTIONS (24)
  - THROMBOSIS [None]
  - BRONCHITIS [None]
  - MUSCLE SPASMS [None]
  - THORACIC OUTLET SYNDROME [None]
  - DIARRHOEA [None]
  - NAUSEA [None]
  - ANXIETY [None]
  - FATIGUE [None]
  - HEPATIC STEATOSIS [None]
  - SYNCOPE [None]
  - PULMONARY EMBOLISM [None]
  - OLIGOMENORRHOEA [None]
  - ASTHMA [None]
  - DYSPNOEA EXERTIONAL [None]
  - ABDOMINAL PAIN [None]
  - DYSFUNCTIONAL UTERINE BLEEDING [None]
  - HEPATOMEGALY [None]
  - OVERDOSE [None]
  - WEIGHT INCREASED [None]
  - MYOCARDIAL ISCHAEMIA [None]
  - UPPER RESPIRATORY TRACT INFECTION [None]
  - NASOPHARYNGITIS [None]
  - BACK PAIN [None]
  - CHEST DISCOMFORT [None]
